FAERS Safety Report 6127384-0 (Version None)
Quarter: 2009Q1

REPORT INFORMATION
  Report Type: 
  Country: None (occurrence: None)
  Receive Date: 20090323
  Receipt Date: 20090312
  Transmission Date: 20090719
  Serious: Yes (Other)
  Sender: FDA-Public Use
  Company Number: PHHY2009AT09182

PATIENT
  Sex: Male

DRUGS (1)
  1. LESCOL [Suspect]
     Dosage: UNK

REACTIONS (2)
  - ECZEMA [None]
  - ERYTHEMA [None]
